FAERS Safety Report 6515878-5 (Version None)
Quarter: 2009Q4

REPORT INFORMATION
  Report Type: 
  Country: None (occurrence: None)
  Receive Date: 20091223
  Receipt Date: 20091216
  Transmission Date: 20100525
  Serious: Yes (Death, Other)
  Sender: FDA-Public Use
  Company Number: US-AMGEN-QUU378247

PATIENT
  Sex: Male
  Weight: 158.9 kg

DRUGS (4)
  1. ENBREL [Suspect]
     Indication: PSORIASIS
     Route: 058
     Dates: start: 20050516, end: 20091101
  2. INSULIN [Concomitant]
  3. ANTIHYPERTENSIVES [Concomitant]
  4. LASIX [Concomitant]

REACTIONS (2)
  - DEATH [None]
  - STASIS DERMATITIS [None]
